FAERS Safety Report 18979313 (Version 1)
Quarter: 2021Q1

REPORT INFORMATION
  Report Type: Spontaneous
  Country: US (occurrence: US)
  Receive Date: 20210308
  Receipt Date: 20210308
  Transmission Date: 20210420
  Serious: No
  Sender: FDA-Public Use
  Company Number: US-CIPLA LTD.-2020US07429

PATIENT

DRUGS (8)
  1. SERTRALINE [Suspect]
     Active Substance: SERTRALINE HYDROCHLORIDE
     Dosage: UNK, DOSE WOULD BE OUT BACK DOWN
     Route: 048
  2. SERTRALINE [Suspect]
     Active Substance: SERTRALINE HYDROCHLORIDE
     Dosage: UNK, UP THE DOSE BY 50 MG DUE TO MORE ANXIETY
     Route: 048
  3. MONTELUKAST SODIUM. [Concomitant]
     Active Substance: MONTELUKAST SODIUM
     Indication: HYPERSENSITIVITY
     Dosage: 10 MILLIGRAM, QD, SINCE MANY YEARS
     Route: 065
  4. SERTRALINE [Suspect]
     Active Substance: SERTRALINE HYDROCHLORIDE
     Indication: ANXIETY
     Dosage: 100 MG, UNK
     Route: 048
  5. SERTRALINE [Suspect]
     Active Substance: SERTRALINE HYDROCHLORIDE
     Dosage: 150 MILLIGRAM, QD, SINCE 1 YEAR
     Route: 048
     Dates: start: 2019
  6. FEXOFENADINE HYDROCHLORIDE. [Concomitant]
     Active Substance: FEXOFENADINE HYDROCHLORIDE
     Indication: HYPERSENSITIVITY
     Dosage: 180 MILLIGRAM, QD, SINCE 6?7 YEARS
     Route: 065
  7. OXYBUTYNIN. [Concomitant]
     Active Substance: OXYBUTYNIN CHLORIDE
     Indication: URINARY TRACT DISORDER
     Dosage: 10 MILLIGRAM, QD
     Route: 065
     Dates: start: 20201007
  8. SERTRALINE [Suspect]
     Active Substance: SERTRALINE HYDROCHLORIDE
     Indication: DEPRESSION
     Dosage: UNK, IT WOULD GO DOWN
     Route: 048

REACTIONS (3)
  - Weight increased [Unknown]
  - Drug screen false positive [Not Recovered/Not Resolved]
  - Drug screen positive [Not Recovered/Not Resolved]

NARRATIVE: CASE EVENT DATE: 20201007
